FAERS Safety Report 23210971 (Version 1)
Quarter: 2023Q4

REPORT INFORMATION
  Report Type: Spontaneous
  Country: US (occurrence: None)
  Receive Date: 20231120
  Receipt Date: 20231120
  Transmission Date: 20240109
  Serious: Yes (Hospitalization)
  Sender: FDA-Public Use
  Company Number: None

PATIENT
  Age: 68 Year
  Sex: Male
  Weight: 97.2 kg

DRUGS (13)
  1. AXICABTAGENE CILOLEUCEL [Suspect]
     Active Substance: AXICABTAGENE CILOLEUCEL
     Indication: Marginal zone lymphoma
     Dosage: FREQUENCY : ONCE;?
     Route: 041
     Dates: start: 20230823, end: 20230823
  2. ALLOPURINOL [Concomitant]
     Active Substance: ALLOPURINOL
  3. BISACODYL [Concomitant]
     Active Substance: BISACODYL
  4. BUPROPION [Concomitant]
     Active Substance: BUPROPION
  5. FLUCONAZOLE [Concomitant]
     Active Substance: FLUCONAZOLE
  6. latanoprost ophthamic solution [Concomitant]
  7. LEVETIRACETAM [Concomitant]
     Active Substance: LEVETIRACETAM
  8. LEVOTHYROXINE [Concomitant]
     Active Substance: LEVOTHYROXINE
  9. OXYCODONE [Concomitant]
     Active Substance: OXYCODONE
  10. TAMSULOSIN [Concomitant]
     Active Substance: TAMSULOSIN
  11. TRAZODONE [Concomitant]
     Active Substance: TRAZODONE HYDROCHLORIDE
  12. VALACYCLOVIR [Concomitant]
     Active Substance: VALACYCLOVIR HYDROCHLORIDE
  13. VITAMIN D [Concomitant]
     Active Substance: VITAMIN D NOS

REACTIONS (5)
  - Cytokine release syndrome [None]
  - Hypotension [None]
  - Confusional state [None]
  - Encephalopathy [None]
  - Ventricular tachycardia [None]

NARRATIVE: CASE EVENT DATE: 20230829
